FAERS Safety Report 23620247 (Version 3)
Quarter: 2024Q2

REPORT INFORMATION
  Report Type: Spontaneous
  Country: US (occurrence: US)
  Receive Date: 20240312
  Receipt Date: 20240624
  Transmission Date: 20240715
  Serious: No
  Sender: FDA-Public Use
  Company Number: US-SA-SAC20240307000092

PATIENT
  Sex: Female
  Weight: 74 kg

DRUGS (21)
  1. DUPIXENT [Suspect]
     Active Substance: DUPILUMAB
     Indication: Dermatitis atopic
     Dosage: 300 MG, QOW
     Route: 058
     Dates: start: 202312
  2. FLUAD QUAD [Concomitant]
     Indication: Immunisation
  3. ALOE VERA LEAF [Concomitant]
     Active Substance: ALOE VERA LEAF
  4. ELIQUIS [Concomitant]
     Active Substance: APIXABAN
  5. COREG [Concomitant]
     Active Substance: CARVEDILOL
  6. ISOSORBIDE MONONITRATE [Concomitant]
     Active Substance: ISOSORBIDE MONONITRATE
  7. COZAAR [Concomitant]
     Active Substance: LOSARTAN POTASSIUM
  8. MAGNESIUM ELEMENTAL [Concomitant]
  9. KETOCONAZOLE [Concomitant]
     Active Substance: KETOCONAZOLE
  10. KETOCONAZOLE [Concomitant]
     Active Substance: KETOCONAZOLE
  11. PROBIOTICS NOS [Concomitant]
     Active Substance: PROBIOTICS NOS
  12. AROMASIN [Concomitant]
     Active Substance: EXEMESTANE
     Dosage: 10325MG
  13. ENDOCET [Concomitant]
     Active Substance: ACETAMINOPHEN\OXYCODONE HYDROCHLORIDE
  14. FELODIPINE [Concomitant]
     Active Substance: FELODIPINE
  15. TERBINAFINE HYDROCHLORIDE [Concomitant]
     Active Substance: TERBINAFINE HYDROCHLORIDE
  16. VALSARTAN [Concomitant]
     Active Substance: VALSARTAN
  17. METOCLOPRAMIDE HYDROCHLORIDE [Concomitant]
     Active Substance: METOCLOPRAMIDE HYDROCHLORIDE
  18. RITONAVIR [Concomitant]
     Active Substance: RITONAVIR
  19. ELMIRON [Concomitant]
     Active Substance: PENTOSAN POLYSULFATE SODIUM
  20. AMLODIPINE BESYLATE [Concomitant]
     Active Substance: AMLODIPINE BESYLATE
  21. AMOXICILLIN [AMOXICILLIN TRIHYDRATE;CLAVULANATE POTASSIUM] [Concomitant]

REACTIONS (10)
  - Headache [Unknown]
  - Fatigue [Not Recovered/Not Resolved]
  - Cardiac disorder [Recovering/Resolving]
  - Gait inability [Unknown]
  - Alopecia [Not Recovered/Not Resolved]
  - Abdominal distension [Unknown]
  - Weight increased [Unknown]
  - Erythema [Not Recovered/Not Resolved]
  - Vision blurred [Unknown]
  - Rash [Unknown]
